FAERS Safety Report 8423059-3 (Version None)
Quarter: 2012Q2

REPORT INFORMATION
  Report Type: 
  Country: None (occurrence: None)
  Receive Date: 20120608
  Receipt Date: 20120604
  Transmission Date: 20120825
  Serious: Yes (Other)
  Sender: FDA-Public Use
  Company Number: PHEH2012US011453

PATIENT
  Sex: Male

DRUGS (6)
  1. SIMVASTATIN [Concomitant]
     Dosage: UNK UKN, UNK
  2. ARICEPT [Concomitant]
     Dosage: 1 DF, DAILY
  3. BISOPROLOL FUMARATE [Concomitant]
     Dosage: UNK UKN, UNK
  4. DIOVAN [Suspect]
     Dosage: 160 MG, DAILY
  5. DILANTIN [Concomitant]
     Dosage: UNK UKN, UNK
  6. PLAVIX [Concomitant]
     Dosage: UNK UKN, UNK

REACTIONS (1)
  - DEMENTIA ALZHEIMER'S TYPE [None]
